FAERS Safety Report 16551399 (Version 1)
Quarter: 2019Q3

REPORT INFORMATION
  Report Type: Spontaneous
  Country: US (occurrence: US)
  Receive Date: 20190710
  Receipt Date: 20190710
  Transmission Date: 20191004
  Serious: Yes (Other)
  Sender: FDA-Public Use
  Company Number: US-AMGEN-USASP2019107508

PATIENT
  Age: 19 Year
  Sex: Male

DRUGS (4)
  1. RITUXIMAB. [Concomitant]
     Active Substance: RITUXIMAB
     Dosage: 375 MILLIGRAM/SQ. METER, ONCE
     Route: 042
  2. BORTEZOMIB. [Concomitant]
     Active Substance: BORTEZOMIB
     Dosage: 2.1 MILLIGRAM, 2 TIMES/WK
     Route: 058
  3. DARBEPOETIN ALFA [Suspect]
     Active Substance: DARBEPOETIN ALFA
     Indication: HAEMOLYTIC TRANSFUSION REACTION
     Dosage: 600 MICROGRAM
     Route: 058
  4. HEMOPURE [Concomitant]
     Active Substance: HEMOGLOBIN GLUTAMER-250 (BOVINE)
     Dosage: ONE UNIT

REACTIONS (5)
  - Alanine aminotransferase abnormal [Recovering/Resolving]
  - Listless [Recovering/Resolving]
  - Off label use [Unknown]
  - Haemoglobin decreased [Recovering/Resolving]
  - Blood bilirubin abnormal [Recovering/Resolving]
